FAERS Safety Report 9851229 (Version 3)
Quarter: 2014Q2

REPORT INFORMATION
  Report Type: Report from Study
  Country: CA (occurrence: CA)
  Receive Date: 20140128
  Receipt Date: 20140522
  Transmission Date: 20141212
  Serious: Yes (Other)
  Sender: FDA-Public Use
  Company Number: CA-ABBVIE-12P-028-0980002-00

PATIENT
  Sex: Male

DRUGS (2)
  1. LUPRON DEPOT [Suspect]
     Indication: PROSTATE CANCER
     Dates: start: 20060607
  2. CHEMOTHERAPEUTICS [Suspect]
     Indication: PROSTATE CANCER

REACTIONS (8)
  - Metastases to bone [Unknown]
  - Bone pain [Unknown]
  - Weight decreased [Unknown]
  - Pain [Unknown]
  - Neuropathy peripheral [Unknown]
  - Laryngitis [Unknown]
  - Skin cancer [Unknown]
  - Skin discolouration [Unknown]
